FAERS Safety Report 10933795 (Version 1)
Quarter: 2015Q1

REPORT INFORMATION
  Report Type: Spontaneous
  Country: CA (occurrence: CA)
  Receive Date: 20150320
  Receipt Date: 20150320
  Transmission Date: 20150721
  Serious: Yes (Hospitalization)
  Sender: FDA-Public Use
  Company Number: CA-MYLANLABS-2015M1008871

PATIENT

DRUGS (2)
  1. GEMCITABINE [Suspect]
     Active Substance: GEMCITABINE\GEMCITABINE HYDROCHLORIDE
     Dosage: ONE HALF OF HER USUAL DOSE
  2. GEMCITABINE [Suspect]
     Active Substance: GEMCITABINE\GEMCITABINE HYDROCHLORIDE
     Indication: OVARIAN CANCER STAGE III
     Dosage: 1000 MG/M2, CYCLE, ON DAYS 1, 8 AND 15 OF 28-DAY CYCLE

REACTIONS (2)
  - Pseudocellulitis [Not Recovered/Not Resolved]
  - Recall phenomenon [Not Recovered/Not Resolved]
